FAERS Safety Report 20186498 (Version 1)
Quarter: 2021Q4

REPORT INFORMATION
  Report Type: Spontaneous
  Country: JP (occurrence: JP)
  Receive Date: 20211215
  Receipt Date: 20211215
  Transmission Date: 20220303
  Serious: Yes (Other)
  Sender: FDA-Public Use
  Company Number: JP-NOVARTISPH-NVSJ2021JP020036

PATIENT
  Age: 18 Year
  Sex: Male
  Weight: 70 kg

DRUGS (3)
  1. NILOTINIB [Suspect]
     Active Substance: NILOTINIB
     Indication: Chronic myeloid leukaemia
     Dosage: 400 MG, BID
     Route: 065
  2. NILOTINIB [Suspect]
     Active Substance: NILOTINIB
     Dosage: 200 MG, BID
     Route: 065
  3. NILOTINIB [Suspect]
     Active Substance: NILOTINIB
     Dosage: UNK
     Route: 065

REACTIONS (6)
  - Electrocardiogram QT prolonged [Unknown]
  - Blood creatine phosphokinase increased [Unknown]
  - Cytogenetic analysis abnormal [Unknown]
  - Drug intolerance [Unknown]
  - Blood creatinine increased [Unknown]
  - Blood bilirubin increased [Unknown]
